FAERS Safety Report 25918251 (Version 1)
Quarter: 2025Q4

REPORT INFORMATION
  Report Type: Spontaneous
  Country: US (occurrence: US)
  Receive Date: 20251014
  Receipt Date: 20251014
  Transmission Date: 20260117
  Serious: No
  Sender: MACLEODS
  Company Number: US-MACLEODS PHARMA-MAC2025055779

PATIENT

DRUGS (1)
  1. LEVOTHYROXINE [Suspect]
     Active Substance: LEVOTHYROXINE
     Indication: Thyroid hormones decreased
     Route: 065
     Dates: start: 20250615, end: 20250829

REACTIONS (6)
  - Hypersensitivity [Unknown]
  - Hair texture abnormal [Recovering/Resolving]
  - Pruritus [Recovering/Resolving]
  - Alopecia [Recovering/Resolving]
  - Drug ineffective [Unknown]
  - Product substitution issue [Unknown]

NARRATIVE: CASE EVENT DATE: 20250615
